FAERS Safety Report 9374910 (Version 1)
Quarter: 2013Q2

REPORT INFORMATION
  Report Type: Spontaneous
  Country: CN (occurrence: CN)
  Receive Date: 20130628
  Receipt Date: 20130628
  Transmission Date: 20140414
  Serious: Yes (Other)
  Sender: FDA-Public Use
  Company Number: CN-PFIZER INC-2013190341

PATIENT
  Age: 3 Year
  Sex: Male

DRUGS (1)
  1. ZITHROMAX [Suspect]
     Indication: BRONCHITIS
     Dosage: 100 MG, 1X/DAY
     Route: 048
     Dates: start: 20121122, end: 20121124

REACTIONS (1)
  - Blindness transient [Recovered/Resolved]
